FAERS Safety Report 7201848-0 (Version None)
Quarter: 2010Q4

REPORT INFORMATION
  Report Type: 
  Country: None (occurrence: None)
  Receive Date: 20101229
  Receipt Date: 20101218
  Transmission Date: 20110411
  Serious: Yes (Other)
  Sender: FDA-Public Use
  Company Number: CA-JNJFOC-20101207233

PATIENT
  Sex: Female
  Weight: 79.38 kg

DRUGS (2)
  1. REMICADE [Suspect]
     Indication: COLITIS ULCERATIVE
     Route: 042
  2. CEFTIN [Suspect]
     Indication: SCARLET FEVER
     Dosage: 10 DAY COURSE
     Route: 065

REACTIONS (2)
  - DRUG HYPERSENSITIVITY [None]
  - SCARLET FEVER [None]
